FAERS Safety Report 7837146-1 (Version None)
Quarter: 2011Q4

REPORT INFORMATION
  Report Type: 
  Country: None (occurrence: None)
  Receive Date: 20111024
  Receipt Date: 20110824
  Transmission Date: 20120403
  Serious: No
  Sender: FDA-Public Use
  Company Number: US-ABBOTT-11P-163-0849370-00

PATIENT
  Sex: Female
  Weight: 90.8 kg

DRUGS (5)
  1. PROZAC [Concomitant]
     Indication: PRODUCT USED FOR UNKNOWN INDICATION
  2. TRAZODONE HYDROCHLORIDE [Concomitant]
     Indication: INSOMNIA
  3. LUPRON DEPOT [Suspect]
     Indication: ENDOMETRIOSIS
     Dates: start: 20110601
  4. NORCO [Concomitant]
     Indication: PRODUCT USED FOR UNKNOWN INDICATION
  5. XANAX [Concomitant]
     Indication: PRODUCT USED FOR UNKNOWN INDICATION

REACTIONS (2)
  - DYSMENORRHOEA [None]
  - VAGINAL HAEMORRHAGE [None]
